FAERS Safety Report 5877050-1 (Version None)
Quarter: 2008Q3

REPORT INFORMATION
  Report Type: 
  Country: None (occurrence: None)
  Receive Date: 20080910
  Receipt Date: 20080903
  Transmission Date: 20090109
  Serious: Yes (Other)
  Sender: FDA-Public Use
  Company Number: PHHY2008BR20172

PATIENT
  Sex: Male
  Weight: 70 kg

DRUGS (6)
  1. CLOZARIL [Suspect]
     Indication: SCHIZOPHRENIA
     Dosage: 100 MG
     Route: 048
     Dates: start: 19940101
  2. CLOZARIL [Suspect]
     Dosage: 3 TABLETS/DAY
     Route: 048
     Dates: start: 20080501
  3. CLOZAPINE [Suspect]
  4. HALDOL [Concomitant]
     Indication: SCHIZOPHRENIA
     Dosage: 5 MG, 2 TABLETS DAILY
     Route: 048
  5. AMPLICTIL [Concomitant]
     Indication: SCHIZOPHRENIA
     Dosage: 100 MG, 3 TABLETS/DAY
  6. FENERGAN [Suspect]
     Indication: SCHIZOPHRENIA
     Dosage: 25 MG, BID
     Route: 048

REACTIONS (5)
  - AGGRESSION [None]
  - DRUG INEFFECTIVE [None]
  - HALLUCINATION [None]
  - PYROMANIA [None]
  - VIOLENCE-RELATED SYMPTOM [None]
